FAERS Safety Report 19406962 (Version 1)
Quarter: 2021Q2

REPORT INFORMATION
  Report Type: Spontaneous
  Country: US (occurrence: US)
  Receive Date: 20210611
  Receipt Date: 20210611
  Transmission Date: 20210717
  Serious: Yes (Other)
  Sender: FDA-Public Use
  Company Number: US-TEVA-2021-US-1920191

PATIENT
  Sex: Female

DRUGS (1)
  1. CARBIDOPA AND LEVODOPA [Suspect]
     Active Substance: CARBIDOPA\LEVODOPA
     Dosage: 25 OF CARBIDOPA/100 MG  OF LEVODOPA
     Route: 065

REACTIONS (2)
  - Suicidal ideation [Recovered/Resolved]
  - Depression [Unknown]
